FAERS Safety Report 12375987 (Version 1)
Quarter: 2016Q2

REPORT INFORMATION
  Report Type: Spontaneous
  Country: US (occurrence: None)
  Receive Date: 20160516
  Receipt Date: 20160516
  Transmission Date: 20160815
  Serious: Yes (Hospitalization)
  Sender: FDA-Public Use
  Company Number: None

PATIENT
  Age: 44 Year
  Sex: Male
  Weight: 140.62 kg

DRUGS (1)
  1. TANZEUM [Suspect]
     Active Substance: ALBIGLUTIDE
     Indication: DIABETES MELLITUS
     Dosage: 1 INJECTION(S) ONCE WEEKLY, GIVEN INTO/UNDER THE SKIN
     Route: 058
     Dates: start: 20160502, end: 20160509

REACTIONS (4)
  - Vomiting [None]
  - Dehydration [None]
  - Flatulence [None]
  - Diarrhoea [None]

NARRATIVE: CASE EVENT DATE: 20160508
